FAERS Safety Report 4580858-6 (Version None)
Quarter: 2005Q1

REPORT INFORMATION
  Report Type: 
  Country: None (occurrence: None)
  Receive Date: 20050214
  Receipt Date: 20040615
  Transmission Date: 20050727
  Serious: No
  Sender: FDA-Public Use
  Company Number: US-GLAXOSMITHKLINE-A0514792A

PATIENT
  Sex: Female

DRUGS (3)
  1. LAMICTAL [Suspect]
     Indication: BIPOLAR DISORDER
     Dosage: 200MG TWICE PER DAY
     Route: 048
  2. LITHIUM [Concomitant]
     Indication: BIPOLAR DISORDER
  3. ANTI-PSYCHOTIC MEDICATION [Concomitant]
     Indication: BIPOLAR DISORDER

REACTIONS (2)
  - ALCOHOL INTERACTION [None]
  - HANGOVER [None]
